FAERS Safety Report 25753049 (Version 1)
Quarter: 2025Q3

REPORT INFORMATION
  Report Type: Spontaneous
  Country: CN (occurrence: CN)
  Receive Date: 20250902
  Receipt Date: 20250902
  Transmission Date: 20251021
  Serious: Yes (Hospitalization)
  Sender: ABBVIE
  Company Number: CN-ABBVIE-6441245

PATIENT
  Age: 76 Year
  Sex: Male
  Weight: 62 kg

DRUGS (5)
  1. VENETOCLAX [Suspect]
     Active Substance: VENETOCLAX
     Indication: Leukaemia
     Dosage: 400 MILLIGRAM
     Route: 048
     Dates: start: 20250823, end: 20250829
  2. VENETOCLAX [Suspect]
     Active Substance: VENETOCLAX
     Indication: Leukaemia
     Dosage: 200 MILLIGRAM
     Route: 048
     Dates: start: 20250822, end: 20250822
  3. VENETOCLAX [Suspect]
     Active Substance: VENETOCLAX
     Indication: Leukaemia
     Dosage: 100 MILLIGRAM
     Route: 048
     Dates: start: 20250821, end: 20250821
  4. CYTARABINE [Suspect]
     Active Substance: CYTARABINE
     Indication: Leukaemia
     Dosage: 0.05 GRAM?ROUTE OF ADMINISTRATION- INTRAVENOUS DRIP
     Dates: start: 20250816, end: 20250819
  5. AZACITIDINE [Suspect]
     Active Substance: AZACITIDINE
     Indication: Leukaemia
     Dosage: 100 MILLIGRAM
     Route: 058
     Dates: start: 20250821, end: 20250827

REACTIONS (1)
  - Myelosuppression [Recovering/Resolving]

NARRATIVE: CASE EVENT DATE: 20250826
